FAERS Safety Report 11643870 (Version 1)
Quarter: 2015Q4

REPORT INFORMATION
  Report Type: Spontaneous
  Country: US (occurrence: None)
  Receive Date: 20151019
  Receipt Date: 20151019
  Transmission Date: 20160304
  Serious: No
  Sender: FDA-Public Use
  Company Number: None

PATIENT
  Age: 47 Year
  Sex: Male
  Weight: 127.01 kg

DRUGS (9)
  1. ZINC [Concomitant]
     Active Substance: ZINC\ZINC CHLORIDE
  2. MAGNESIUM [Concomitant]
     Active Substance: MAGNESIUM
  3. HUMIRA [Suspect]
     Active Substance: ADALIMUMAB
     Indication: RHEUMATOID ARTHRITIS
     Dosage: 1 PEN GIVEN INTO/UNDER THE SKIN
     Dates: start: 20150916, end: 20150930
  4. FISH OIL [Concomitant]
     Active Substance: FISH OIL
  5. CPAP [Concomitant]
     Active Substance: DEVICE
  6. VERAPAMIL [Concomitant]
     Active Substance: VERAPAMIL HYDROCHLORIDE
  7. TRAZODONE [Concomitant]
     Active Substance: TRAZODONE HYDROCHLORIDE
  8. AMBIEN [Concomitant]
     Active Substance: ZOLPIDEM TARTRATE
  9. XANAX [Concomitant]
     Active Substance: ALPRAZOLAM

REACTIONS (8)
  - Migraine [None]
  - Nausea [None]
  - Pyrexia [None]
  - Chest discomfort [None]
  - Influenza like illness [None]
  - Pulmonary congestion [None]
  - Chills [None]
  - Hyperhidrosis [None]

NARRATIVE: CASE EVENT DATE: 20151007
